FAERS Safety Report 6294815-5 (Version None)
Quarter: 2009Q3

REPORT INFORMATION
  Report Type: 
  Country: None (occurrence: None)
  Receive Date: 20090803
  Receipt Date: 20090727
  Transmission Date: 20100115
  Serious: Yes (Death, Hospitalization, Other)
  Sender: FDA-Public Use
  Company Number: US-CELGENEUS-163-21880-06101012

PATIENT
  Sex: Male

DRUGS (3)
  1. REVLIMID [Suspect]
     Indication: MULTIPLE MYELOMA
     Route: 048
     Dates: start: 20060929, end: 20061008
  2. REVLIMID [Suspect]
     Route: 048
     Dates: start: 20061101
  3. DEXAMETHASONE [Concomitant]
     Indication: MULTIPLE MYELOMA
     Route: 065
     Dates: start: 20061009

REACTIONS (8)
  - DEATH [None]
  - LEUKAEMIA PLASMACYTIC [None]
  - LUNG INFILTRATION [None]
  - PERICARDIAL EFFUSION [None]
  - PERICARDITIS [None]
  - PNEUMONIA BACTERIAL [None]
  - PYREXIA [None]
  - TACHYCARDIA [None]
